FAERS Safety Report 19736684 (Version 1)
Quarter: 2021Q3

REPORT INFORMATION
  Report Type: Spontaneous
  Country: IT (occurrence: IT)
  Receive Date: 20210823
  Receipt Date: 20210823
  Transmission Date: 20211014
  Serious: Yes (Hospitalization)
  Sender: FDA-Public Use
  Company Number: IT-009507513-2108ITA004277

PATIENT
  Age: 64 Year
  Sex: Male
  Weight: 80 kg

DRUGS (3)
  1. PEMBROLIZUMAB. [Suspect]
     Active Substance: PEMBROLIZUMAB
     Indication: LUNG NEOPLASM
     Dosage: 200 MILLIGRAM, CYCLICAL.  FORMULATION WAS REPORTED AS SOLUTION FOR INFUSION.
     Route: 042
     Dates: start: 20210521, end: 20210611
  2. CARBOPLATIN. [Concomitant]
     Active Substance: CARBOPLATIN
     Indication: LUNG NEOPLASM
     Dosage: 500 MILLIGRAM, CYCLICAL
     Route: 042
     Dates: start: 20210521, end: 20210601
  3. PEMETREXED DISODIUM [Concomitant]
     Active Substance: PEMETREXED DISODIUM
     Indication: LUNG NEOPLASM
     Dosage: 700 MILLIGRAM, CYCLICAL
     Route: 042
     Dates: start: 20210521, end: 20210611

REACTIONS (3)
  - Adrenal insufficiency [Not Recovered/Not Resolved]
  - Muscular weakness [Not Recovered/Not Resolved]
  - Transaminases increased [Not Recovered/Not Resolved]

NARRATIVE: CASE EVENT DATE: 20210702
